FAERS Safety Report 5223528-3 (Version None)
Quarter: 2007Q1

REPORT INFORMATION
  Report Type: 
  Country: None (occurrence: None)
  Receive Date: 20070125
  Receipt Date: 20070112
  Transmission Date: 20070707
  Serious: Yes (Other)
  Sender: FDA-Public Use
  Company Number: 232202

PATIENT
  Sex: Male

DRUGS (4)
  1. LUCENTIS [Suspect]
     Indication: DRUG USE FOR UNKNOWN INDICATION
     Dosage: UNK, INTRAVITREAL
     Dates: start: 20060410
  2. XALATAN EYE GTTS. (LATANOPROST) [Concomitant]
  3. LYRICA [Concomitant]
  4. TOBRAMYCIN [Concomitant]

REACTIONS (1)
  - HALLUCINATION, VISUAL [None]
